FAERS Safety Report 9700775 (Version 3)
Quarter: 2014Q2

REPORT INFORMATION
  Report Type: Spontaneous
  Country: CN (occurrence: CN)
  Receive Date: 20131121
  Receipt Date: 20140515
  Transmission Date: 20141212
  Serious: Yes (Hospitalization)
  Sender: FDA-Public Use
  Company Number: PHHY2013CN132497

PATIENT
  Age: 80 Year
  Sex: Female

DRUGS (1)
  1. MIACALCIC [Suspect]
     Indication: OSTEOPOROSIS
     Dosage: 50 IU, QD
     Route: 065
     Dates: start: 20131102, end: 20131106

REACTIONS (2)
  - Skin ulcer [Recovering/Resolving]
  - Rash generalised [Recovering/Resolving]
